FAERS Safety Report 5315340-1 (Version None)
Quarter: 2007Q2

REPORT INFORMATION
  Report Type: 
  Country: None (occurrence: None)
  Receive Date: 20070502
  Receipt Date: 20070423
  Transmission Date: 20071010
  Serious: Yes (Other)
  Sender: FDA-Public Use
  Company Number: IE-PFIZER INC-2007033707

PATIENT
  Sex: Female

DRUGS (1)
  1. XALATAN [Suspect]
     Indication: GLAUCOMA
     Route: 061

REACTIONS (9)
  - DIARRHOEA [None]
  - DIZZINESS [None]
  - FATIGUE [None]
  - HAIR GROWTH ABNORMAL [None]
  - INSOMNIA [None]
  - NAUSEA [None]
  - PALPITATIONS [None]
  - RETINAL TEAR [None]
  - WEIGHT DECREASED [None]
